FAERS Safety Report 5042601-6 (Version None)
Quarter: 2006Q3

REPORT INFORMATION
  Report Type: 
  Country: None (occurrence: None)
  Receive Date: 20060705
  Receipt Date: 20060623
  Transmission Date: 20061208
  Serious: Yes (Other)
  Sender: FDA-Public Use
  Company Number: PHBS2006ES09380

PATIENT
  Age: 55 Year
  Sex: Male

DRUGS (3)
  1. ZOMETA [Suspect]
     Indication: PROSTATE CANCER
     Dosage: WEEKLY FOR 3 MONTHS
     Route: 042
  2. RADIOTHERAPY [Concomitant]
     Route: 065
  3. CHEMOTHERAPEUTICS,OTHER [Concomitant]
     Route: 065

REACTIONS (1)
  - OSTEONECROSIS [None]
